FAERS Safety Report 17805847 (Version 1)
Quarter: 2020Q2

REPORT INFORMATION
  Report Type: Spontaneous
  Country: US (occurrence: US)
  Receive Date: 20200519
  Receipt Date: 20200519
  Transmission Date: 20200714
  Serious: Yes (Other)
  Sender: FDA-Public Use
  Company Number: US-009507513-2005USA004128

PATIENT
  Age: 55 Year
  Sex: Male

DRUGS (5)
  1. EPACADOSTAT [Concomitant]
     Active Substance: EPACADOSTAT
     Indication: BLADDER CANCER
     Dosage: UNK
     Dates: start: 201607, end: 201805
  2. ATEZOLIZUMAB. [Concomitant]
     Active Substance: ATEZOLIZUMAB
     Indication: BLADDER CANCER
     Dosage: UNK
     Dates: start: 201806, end: 201812
  3. KEYTRUDA [Suspect]
     Active Substance: PEMBROLIZUMAB
     Indication: BLADDER CANCER
     Dosage: UNK
     Dates: start: 201607, end: 201805
  4. KEYTRUDA [Suspect]
     Active Substance: PEMBROLIZUMAB
     Dosage: UNK
     Dates: start: 201812, end: 201907
  5. GUADECITABINE [Concomitant]
     Active Substance: GUADECITABINE
     Indication: BLADDER CANCER
     Dosage: UNK
     Dates: start: 201806, end: 201812

REACTIONS (2)
  - Focal segmental glomerulosclerosis [Recovering/Resolving]
  - Glomerulonephritis minimal lesion [Recovering/Resolving]
